FAERS Safety Report 12074575 (Version 6)
Quarter: 2019Q2

REPORT INFORMATION
  Report Type: Report from Study
  Country: BR (occurrence: BR)
  Receive Date: 20160212
  Receipt Date: 20190606
  Transmission Date: 20190711
  Serious: Yes (Life-Threatening, Hospitalization, Other)
  Sender: FDA-Public Use
  Company Number: BR-ALEXION PHARMACEUTICALS INC-A201600821

PATIENT
  Age: 29 Year
  Sex: Female

DRUGS (5)
  1. SOLIRIS [Suspect]
     Active Substance: ECULIZUMAB
     Dosage: 1200 MG, Q2W
     Route: 042
     Dates: start: 20140624
  2. ATENOLOL. [Concomitant]
     Active Substance: ATENOLOL
     Indication: HYPERTENSION
     Dosage: 2 TABLETS (UNSPECIFIED DOSE), QD
     Route: 065
  3. SOLIRIS [Suspect]
     Active Substance: ECULIZUMAB
     Indication: ATYPICAL HAEMOLYTIC URAEMIC SYNDROME
     Dosage: 900 MG, QW
     Route: 042
     Dates: start: 20140527, end: 20140617
  4. PREDNISONE. [Concomitant]
     Active Substance: PREDNISONE
     Indication: PRODUCT USED FOR UNKNOWN INDICATION
     Dosage: 1 TABLET (UNSPECIFIED DOSE), QD
     Route: 065
  5. LOSARTAN. [Concomitant]
     Active Substance: LOSARTAN
     Indication: HYPERTENSION
     Dosage: 2 TABLETS (UNSPECIFIED DOSE), QD
     Route: 065

REACTIONS (13)
  - Meningitis cryptococcal [Recovered/Resolved]
  - Graft loss [Unknown]
  - Vomiting [Unknown]
  - Infection [Unknown]
  - Condition aggravated [Unknown]
  - Hypotension [Unknown]
  - Depressed level of consciousness [Unknown]
  - Coma [Unknown]
  - Blood pressure increased [Unknown]
  - Hyperthermia [Unknown]
  - Disease recurrence [Unknown]
  - Renal transplant failure [Unknown]
  - Vertigo [Unknown]

NARRATIVE: CASE EVENT DATE: 20160104
